FAERS Safety Report 6853788-4 (Version None)
Quarter: 2010Q3

REPORT INFORMATION
  Report Type: 
  Country: None (occurrence: None)
  Receive Date: 20100717
  Receipt Date: 20071217
  Transmission Date: 20110219
  Serious: No
  Sender: FDA-Public Use
  Company Number: US-PFIZER INC-2007107476

PATIENT
  Sex: Female

DRUGS (1)
  1. CHANTIX [Suspect]
     Indication: SMOKING CESSATION THERAPY
     Dates: start: 20070915

REACTIONS (8)
  - ABASIA [None]
  - ANGER [None]
  - ARTHRALGIA [None]
  - BLOOD PRESSURE DECREASED [None]
  - EUPHORIC MOOD [None]
  - MYALGIA [None]
  - POLYMENORRHOEA [None]
  - WEIGHT DECREASED [None]
